FAERS Safety Report 5197910-7 (Version None)
Quarter: 2007Q1

REPORT INFORMATION
  Report Type: 
  Country: None (occurrence: None)
  Receive Date: 20070104
  Receipt Date: 20061228
  Transmission Date: 20070707
  Serious: Yes (Other)
  Sender: FDA-Public Use
  Company Number: US-BAYER-200615184BWH

PATIENT
  Age: 55 Year
  Sex: Male
  Weight: 84 kg

DRUGS (6)
  1. LEVITRA [Suspect]
     Indication: ERECTILE DYSFUNCTION
     Route: 048
  2. POTASSIUM ACETATE [Concomitant]
  3. IRON [Concomitant]
  4. CYANOCOBALAMIN [Concomitant]
     Route: 058
  5. WELLBUTRIN [Concomitant]
  6. NEXIUM [Concomitant]

REACTIONS (4)
  - CEREBROVASCULAR ACCIDENT [None]
  - HEADACHE [None]
  - THROMBOTIC STROKE [None]
  - VISUAL ACUITY REDUCED [None]
